FAERS Safety Report 9015410 (Version 1)
Quarter: 2013Q1

REPORT INFORMATION
  Report Type: Spontaneous
  Country: MX (occurrence: MX)
  Receive Date: 20130116
  Receipt Date: 20130116
  Transmission Date: 20140127
  Serious: Yes (Other)
  Sender: FDA-Public Use
  Company Number: MX-BRISTOL-MYERS SQUIBB COMPANY-17281981

PATIENT
  Age: 41 Year
  Sex: Male
  Weight: 135 kg

DRUGS (1)
  1. APROVEL TABS 300 MG [Suspect]
     Indication: HYPERTENSION
     Route: 048
     Dates: start: 20121227

REACTIONS (2)
  - Hypertriglyceridaemia [Unknown]
  - Hypertension [Not Recovered/Not Resolved]
